FAERS Safety Report 10548597 (Version 4)
Quarter: 2015Q1

REPORT INFORMATION
  Report Type: Other
  Country: US (occurrence: US)
  Receive Date: 20141028
  Receipt Date: 20150106
  Transmission Date: 20150720
  Serious: Yes (Other)
  Sender: FDA-Public Use
  Company Number: US-ACORDA-ACO_104707_2014

PATIENT
  Age: 41 Year
  Sex: Female

DRUGS (7)
  1. TECFIDERA [Suspect]
     Active Substance: DIMETHYL FUMARATE
     Indication: PRODUCT USED FOR UNKNOWN INDICATION
     Dosage: UNK
     Route: 065
  2. OXYBUTIN [Concomitant]
     Active Substance: OXYBUTYNIN
     Indication: DYSURIA
     Dosage: 5 MG, QD
     Route: 048
  3. AMPYRA [Suspect]
     Active Substance: DALFAMPRIDINE
     Indication: ASTHENIA
  4. GILENYA [Suspect]
     Active Substance: FINGOLIMOD HYDROCHLORIDE
     Indication: PRODUCT USED FOR UNKNOWN INDICATION
     Dosage: UNK
     Route: 065
  5. ESTRADIOL. [Concomitant]
     Active Substance: ESTRADIOL
     Indication: PRODUCT USED FOR UNKNOWN INDICATION
     Dosage: 10.5 MG, QD
     Route: 065
  6. AMPYRA [Suspect]
     Active Substance: DALFAMPRIDINE
     Indication: MULTIPLE SCLEROSIS
     Dosage: 10 MG, BID
     Route: 048
     Dates: start: 20120329, end: 201308
  7. AMPYRA [Suspect]
     Active Substance: DALFAMPRIDINE
     Indication: FATIGUE
     Dosage: 10 MG, BID
     Route: 048

REACTIONS (14)
  - Bone marrow failure [Unknown]
  - Abdominal pain [Unknown]
  - Diarrhoea [Recovered/Resolved]
  - Feeding disorder [Unknown]
  - Asthenia [Unknown]
  - Multiple sclerosis relapse [Unknown]
  - Neutropenia [Recovered/Resolved]
  - Pain [Recovered/Resolved]
  - Gait disturbance [Unknown]
  - Pancytopenia [Unknown]
  - Peroneal nerve palsy [Unknown]
  - Insomnia [Unknown]
  - Balance disorder [Unknown]
  - Cholelithiasis [Recovered/Resolved]

NARRATIVE: CASE EVENT DATE: 20130103
